FAERS Safety Report 7212019-6 (Version None)
Quarter: 2011Q1

REPORT INFORMATION
  Report Type: 
  Country: None (occurrence: None)
  Receive Date: 20110106
  Receipt Date: 20101227
  Transmission Date: 20110831
  Serious: No
  Sender: FDA-Public Use
  Company Number: US-BIOGENIDEC-2011BI000212

PATIENT
  Age: 65 Year
  Sex: Female

DRUGS (3)
  1. AVONEX [Suspect]
     Indication: MULTIPLE SCLEROSIS
     Route: 030
     Dates: start: 19960401
  2. AVONEX [Suspect]
     Route: 030
     Dates: start: 19980901
  3. AVONEX [Suspect]
     Route: 030
     Dates: start: 20101221

REACTIONS (4)
  - HALLUCINATION [None]
  - POLLAKIURIA [None]
  - GAIT DISTURBANCE [None]
  - WEIGHT DECREASED [None]
